FAERS Safety Report 8586295-1 (Version None)
Quarter: 2012Q3

REPORT INFORMATION
  Report Type: 
  Country: None (occurrence: None)
  Receive Date: 20120810
  Receipt Date: 20120716
  Transmission Date: 20120928
  Serious: Yes (Death)
  Sender: FDA-Public Use
  Company Number: IN-ROCHE-1098384

PATIENT
  Age: 50 Year
  Sex: Male
  Weight: 70 kg

DRUGS (2)
  1. METALYSE [Suspect]
     Indication: ACUTE MYOCARDIAL INFARCTION
     Dosage: 7 ML
     Dates: start: 20120714
  2. HEPARIN [Concomitant]

REACTIONS (2)
  - CARDIOGENIC SHOCK [None]
  - MULTI-ORGAN FAILURE [None]
